FAERS Safety Report 7893202-3 (Version None)
Quarter: 2011Q4

REPORT INFORMATION
  Report Type: 
  Country: None (occurrence: None)
  Receive Date: 20111104
  Receipt Date: 20111028
  Transmission Date: 20120403
  Serious: Yes (Hospitalization)
  Sender: FDA-Public Use
  Company Number: PHEH2011US05442

PATIENT
  Sex: Female
  Weight: 85.73 kg

DRUGS (1)
  1. EXJADE [Suspect]
     Indication: SICKLE CELL ANAEMIA WITH CRISIS
     Dosage: 1500 MG, UNK
     Route: 048
     Dates: start: 20060801

REACTIONS (2)
  - SICKLE CELL ANAEMIA WITH CRISIS [None]
  - PNEUMONIA [None]
